FAERS Safety Report 4380103-0 (Version None)
Quarter: 2004Q2

REPORT INFORMATION
  Report Type: 
  Country: None (occurrence: None)
  Receive Date: 20040614
  Receipt Date: 20040217
  Transmission Date: 20050107
  Serious: No
  Sender: FDA-Public Use
  Company Number: M04-341-055

PATIENT
  Age: 50 Year
  Sex: Female
  Weight: 65 kg

DRUGS (1)
  1. VELCADE [Suspect]
     Indication: MULTIPLE MYELOMA
     Dosage: 2.2 MG BIW: INTRAVENOUS
     Route: 042

REACTIONS (3)
  - CONTUSION [None]
  - GINGIVAL BLEEDING [None]
  - PLATELET COUNT DECREASED [None]
